FAERS Safety Report 11828450 (Version 1)
Quarter: 2015Q4

REPORT INFORMATION
  Report Type: Spontaneous
  Country: FR (occurrence: FR)
  Receive Date: 20151211
  Receipt Date: 20151211
  Transmission Date: 20160305
  Serious: Yes (Other)
  Sender: FDA-Public Use
  Company Number: FR-PFIZER INC-2015425675

PATIENT
  Age: 20 Month
  Sex: Male
  Weight: 9 kg

DRUGS (2)
  1. RAPAMUNE [Suspect]
     Active Substance: SIROLIMUS
     Indication: BICYTOPENIA
     Dosage: 1 MG, 1X/DAY
     Route: 048
     Dates: start: 20150908
  2. RAPAMUNE [Suspect]
     Active Substance: SIROLIMUS
     Indication: EVANS SYNDROME

REACTIONS (2)
  - Oral disorder [Recovered/Resolved]
  - Tongue ulceration [Recovered/Resolved]

NARRATIVE: CASE EVENT DATE: 20150915
